FAERS Safety Report 6999293-6 (Version None)
Quarter: 2010Q3

REPORT INFORMATION
  Report Type: 
  Country: None (occurrence: None)
  Receive Date: 20100920
  Receipt Date: 20090923
  Transmission Date: 20110219
  Serious: No
  Sender: FDA-Public Use
  Company Number: US-ASTRAZENECA-2009SE06895

PATIENT
  Sex: Female

DRUGS (7)
  1. SEROQUEL [Suspect]
     Route: 048
  2. CARAFATE [Concomitant]
  3. PRAZOSIN HCL [Concomitant]
  4. CLONOPIN [Concomitant]
  5. ZEGERID [Concomitant]
  6. VISTARIL [Concomitant]
  7. ATIVAN [Concomitant]

REACTIONS (3)
  - HYPOAESTHESIA [None]
  - INSOMNIA [None]
  - PARAESTHESIA [None]
